FAERS Safety Report 6934555-X (Version None)
Quarter: 2010Q3

REPORT INFORMATION
  Report Type: 
  Country: None (occurrence: None)
  Receive Date: 20100820
  Receipt Date: 20100811
  Transmission Date: 20110219
  Serious: Yes (Hospitalization)
  Sender: FDA-Public Use
  Company Number: FR-AMGEN-US425792

PATIENT
  Sex: Female

DRUGS (2)
  1. ENBREL [Suspect]
     Indication: RHEUMATOID ARTHRITIS
     Route: 058
     Dates: end: 20091201
  2. ENBREL [Suspect]
     Route: 058
     Dates: start: 20100101, end: 20100601

REACTIONS (4)
  - ABSCESS LIMB [None]
  - FOOT OPERATION [None]
  - INCISION SITE ABSCESS [None]
  - STAPHYLOCOCCAL INFECTION [None]
